FAERS Safety Report 12679170 (Version 2)
Quarter: 2016Q3

REPORT INFORMATION
  Report Type: Spontaneous
  Country: US (occurrence: US)
  Receive Date: 20160824
  Receipt Date: 20160824
  Transmission Date: 20161109
  Serious: No
  Sender: FDA-Public Use
  Company Number: US-TEVA-678074USA

PATIENT
  Sex: Female

DRUGS (1)
  1. MEDROXYPROGESTERONE [Suspect]
     Active Substance: MEDROXYPROGESTERONE
     Indication: HORMONE LEVEL ABNORMAL
     Route: 057

REACTIONS (3)
  - Drug ineffective [Unknown]
  - Menstruation irregular [Unknown]
  - Product odour abnormal [Unknown]
